FAERS Safety Report 18938408 (Version 1)
Quarter: 2021Q1

REPORT INFORMATION
  Report Type: Spontaneous
  Country: DE (occurrence: DE)
  Receive Date: 20210225
  Receipt Date: 20210225
  Transmission Date: 20210420
  Serious: No
  Sender: FDA-Public Use
  Company Number: DE-ALKEM LABORATORIES LIMITED-DE-ALKEM-2020-01580

PATIENT
  Sex: Male

DRUGS (2)
  1. FINASTERIDE. [Suspect]
     Active Substance: FINASTERIDE
     Indication: BENIGN PROSTATIC HYPERPLASIA
     Dosage: UNK
     Route: 065
  2. ST. JOHN^S WORT EXTRACT [Suspect]
     Active Substance: ST. JOHN^S WORT
     Indication: ANTIDEPRESSANT THERAPY
     Dosage: 900 MILLIGRAM, QD
     Route: 065

REACTIONS (3)
  - Prostatic specific antigen increased [Unknown]
  - Drug interaction [Unknown]
  - Drug ineffective [Unknown]
